FAERS Safety Report 7708722-1 (Version None)
Quarter: 2011Q3

REPORT INFORMATION
  Report Type: 
  Country: None (occurrence: None)
  Receive Date: 20110825
  Receipt Date: 20110825
  Transmission Date: 20111222
  Serious: No
  Sender: FDA-Public Use
  Company Number: None

PATIENT
  Age: 36 Year
  Sex: Female
  Weight: 102.96 kg

DRUGS (1)
  1. FERUMOXYTOL [Suspect]
     Indication: IRON DEFICIENCY ANAEMIA
     Dosage: 510 MG
     Dates: start: 20110812, end: 20110812

REACTIONS (6)
  - DYSPNOEA [None]
  - MUSCLE SPASMS [None]
  - PAIN IN EXTREMITY [None]
  - NAUSEA [None]
  - BACK PAIN [None]
  - CHEST PAIN [None]
